FAERS Safety Report 24405094 (Version 1)
Quarter: 2024Q4

REPORT INFORMATION
  Report Type: Report from Study
  Country: US (occurrence: US)
  Receive Date: 20241007
  Receipt Date: 20241007
  Transmission Date: 20250114
  Serious: No
  Sender: ROCHE
  Company Number: US-ROCHE-3563217

PATIENT
  Age: 64 Year
  Sex: Male
  Weight: 99.79 kg

DRUGS (8)
  1. GAZYVA [Suspect]
     Active Substance: OBINUTUZUMAB
     Indication: Chronic lymphocytic leukaemia
     Dosage: 3 ROUNDS, 01-MAY-2024 100 MG THEN 1100 NEXT DAY 02/MAY/2024 08/MAY/2024, CYCLE 1 05/JUN/2024 ;ONGOIN
     Route: 042
     Dates: start: 20240501
  2. ALLOPURINOL [Concomitant]
     Active Substance: ALLOPURINOL
     Indication: Chronic lymphocytic leukaemia
     Route: 048
     Dates: start: 20240423
  3. ACYCLOVIR [Concomitant]
     Active Substance: ACYCLOVIR
     Indication: Chronic lymphocytic leukaemia
     Route: 048
     Dates: start: 20240423
  4. MOXIFLOXACIN [Concomitant]
     Active Substance: MOXIFLOXACIN
     Indication: Infection
     Dosage: PATIENT NOT FINISH THE ANTIBIOTICS DUE TO GETTING READY TO START TREATMENT
     Route: 048
     Dates: start: 20240330
  5. LEVOTHYROXINE [Concomitant]
     Active Substance: LEVOTHYROXINE
     Dosage: LAST DOSE 10/MAY/2024
     Route: 048
  6. AMLODIPINE [Concomitant]
     Active Substance: AMLODIPINE BESYLATE
     Indication: Hypertension
     Dosage: LAST DOSE 10/MAY/2024
     Route: 048
  7. VITAMIN D3 [Concomitant]
     Active Substance: CHOLECALCIFEROL
     Dosage: LAST DOSE 09/MAY/2024
     Route: 048
  8. MINERALS\VITAMINS [Concomitant]
     Active Substance: MINERALS\VITAMINS
     Dosage: LAST DOSE 09/MAY/2024
     Route: 048

REACTIONS (10)
  - Off label use [Unknown]
  - Gastroenteritis viral [Recovered/Resolved]
  - Hypersomnia [Recovered/Resolved]
  - Platelet count decreased [Unknown]
  - Haemoglobin decreased [Unknown]
  - Lymphadenopathy [Recovering/Resolving]
  - Feeling hot [Unknown]
  - Nausea [Unknown]
  - Heart rate increased [Unknown]
  - Blood pressure decreased [Unknown]

NARRATIVE: CASE EVENT DATE: 20240501
